FAERS Safety Report 4319364-2 (Version None)
Quarter: 2004Q1

REPORT INFORMATION
  Report Type: 
  Country: None (occurrence: None)
  Receive Date: 20040316
  Receipt Date: 20040304
  Transmission Date: 20041129
  Serious: Yes (Other)
  Sender: FDA-Public Use
  Company Number: 2004AP00433

PATIENT
  Age: 74 Year
  Sex: Male

DRUGS (16)
  1. IRESSA [Suspect]
     Indication: LUNG ADENOCARCINOMA
     Dosage: 250 MG DAILY PO
     Route: 048
     Dates: start: 20031018
  2. IRESSA [Suspect]
     Indication: NON-SMALL CELL LUNG CANCER
     Dosage: 250 MG DAILY PO
     Route: 048
     Dates: start: 20031018
  3. FLIVAS [Concomitant]
  4. MYSLEE [Concomitant]
  5. BUFFERIN [Concomitant]
  6. LASIX [Concomitant]
  7. HALFIDIGOXIN [Concomitant]
  8. PREDNISOLONE [Concomitant]
  9. PRIMPERAN INJ [Concomitant]
  10. MAGLAX [Concomitant]
  11. SELBEX [Concomitant]
  12. GASTER [Concomitant]
  13. HYDANTOL [Concomitant]
  14. CISPLATIN [Concomitant]
  15. PACLITAXEL [Concomitant]
  16. RADIATION THERAPY [Concomitant]

REACTIONS (6)
  - ALANINE AMINOTRANSFERASE INCREASED [None]
  - ASPARTATE AMINOTRANSFERASE INCREASED [None]
  - GAMMA-GLUTAMYLTRANSFERASE INCREASED [None]
  - MALIGNANT NEOPLASM PROGRESSION [None]
  - NON-SMALL CELL LUNG CANCER [None]
  - PNEUMONIA ASPIRATION [None]
